FAERS Safety Report 6813994-1 (Version None)
Quarter: 2010Q3

REPORT INFORMATION
  Report Type: 
  Country: None (occurrence: None)
  Receive Date: 20100702
  Receipt Date: 20100628
  Transmission Date: 20110219
  Serious: Yes (Hospitalization)
  Sender: FDA-Public Use
  Company Number: PH-B.I. PHARMACEUTICALS,INC./RIDGEFIELD-2010-CS-00611CS

PATIENT
  Age: 55 Year
  Sex: Male

DRUGS (3)
  1. MOBIC [Suspect]
     Indication: CERVICOBRACHIAL SYNDROME
     Route: 048
     Dates: end: 20100619
  2. SIMVASTATIN [Concomitant]
  3. VALSARTAN [Concomitant]

REACTIONS (3)
  - GASTROINTESTINAL EROSION [None]
  - HAEMATEMESIS [None]
  - HAEMATOCHEZIA [None]
